FAERS Safety Report 14603311 (Version 1)
Quarter: 2018Q1

REPORT INFORMATION
  Report Type: Spontaneous
  Country: US (occurrence: US)
  Receive Date: 20180303
  Receipt Date: 20180303
  Transmission Date: 20180509
  Serious: Yes (Hospitalization)
  Sender: FDA-Public Use
  Company Number: None

PATIENT
  Age: 59 Year
  Sex: Female
  Weight: 106.5 kg

DRUGS (7)
  1. LORAZEPAM. [Concomitant]
     Active Substance: LORAZEPAM
  2. NORCO [Concomitant]
     Active Substance: ACETAMINOPHEN\HYDROCODONE BITARTRATE
  3. ROBITUSSIN COUGH + CHEST CONGESTION DM [Concomitant]
  4. BENZONATATE. [Concomitant]
     Active Substance: BENZONATATE
  5. APIXABAN, BLINDED 2.5 VS 5.0 MG [Suspect]
     Active Substance: APIXABAN
     Indication: PULMONARY EMBOLISM
     Dosage: 2.5 VS 5.0 MG BID ORAL
     Route: 048
     Dates: start: 20170929, end: 20180218
  6. LEVOTHYROXINE SODIUM. [Concomitant]
     Active Substance: LEVOTHYROXINE SODIUM
  7. TYLENOL EXTRA STRENTGH [Concomitant]

REACTIONS (5)
  - Malignant neoplasm progression [None]
  - Cough [None]
  - Haemoptysis [None]
  - Non-small cell lung cancer [None]
  - Therapy cessation [None]

NARRATIVE: CASE EVENT DATE: 20180219
